FAERS Safety Report 7274344-2 (Version None)
Quarter: 2011Q1

REPORT INFORMATION
  Report Type: 
  Country: None (occurrence: None)
  Receive Date: 20110131
  Receipt Date: 20110131
  Transmission Date: 20110831
  Serious: No
  Sender: FDA-Public Use
  Company Number: None

PATIENT
  Age: 51 Year
  Sex: Female
  Weight: 86.1834 kg

DRUGS (1)
  1. LEVAQUIN [Suspect]
     Indication: SINUSITIS
     Dosage: 750 MG ONCE PER DAY PO
     Route: 048
     Dates: start: 20110120, end: 20110124

REACTIONS (2)
  - MUSCULOSKELETAL PAIN [None]
  - ARTHRALGIA [None]
